FAERS Safety Report 6612171-7 (Version None)
Quarter: 2010Q1

REPORT INFORMATION
  Report Type: 
  Country: None (occurrence: None)
  Receive Date: 20100302
  Receipt Date: 20100302
  Transmission Date: 20100710
  Serious: Yes (Other)
  Sender: FDA-Public Use
  Company Number: None

PATIENT
  Sex: Female
  Weight: 83.9154 kg

DRUGS (1)
  1. MAXALT-MLT [Suspect]
     Indication: MIGRAINE
     Dosage: 1 PRN BUCCAL
     Route: 002
     Dates: start: 20100228, end: 20100301

REACTIONS (5)
  - APHASIA [None]
  - CONFUSIONAL STATE [None]
  - MIGRAINE [None]
  - NAUSEA [None]
  - PAIN [None]
